FAERS Safety Report 16029150 (Version 1)
Quarter: 2019Q1

REPORT INFORMATION
  Report Type: Spontaneous
  Country: US (occurrence: US)
  Receive Date: 20190204
  Receipt Date: 20190204
  Transmission Date: 20190418
  Serious: Yes (Other)
  Sender: FDA-Public Use
  Company Number: None

PATIENT
  Age: 57 Year
  Weight: 61.69 kg

DRUGS (1)
  1. SEVOFLURANE. [Suspect]
     Active Substance: SEVOFLURANE
     Indication: GASTROINTESTINAL SURGERY
     Dates: start: 20181213

REACTIONS (15)
  - Fatigue [None]
  - Influenza like illness [None]
  - Chromaturia [None]
  - Chills [None]
  - Decreased appetite [None]
  - Malaise [None]
  - Nausea [None]
  - Hepatitis [None]
  - Weight decreased [None]
  - Hepatic enzyme increased [None]
  - Pain [None]
  - Lethargy [None]
  - Hyperchlorhydria [None]
  - Pruritus [None]
  - Frequent bowel movements [None]

NARRATIVE: CASE EVENT DATE: 20181226
